FAERS Safety Report 20357136 (Version 2)
Quarter: 2022Q2

REPORT INFORMATION
  Report Type: Spontaneous
  Country: US (occurrence: US)
  Receive Date: 20220120
  Receipt Date: 20220504
  Transmission Date: 20220721
  Serious: No
  Sender: FDA-Public Use
  Company Number: US-SA-SAC20220118000283

PATIENT
  Age: 25 Year
  Sex: Female

DRUGS (1)
  1. DUPIXENT [Suspect]
     Active Substance: DUPILUMAB
     Indication: Dermatitis
     Dosage: 300 MG, QOW
     Route: 058
     Dates: start: 202102

REACTIONS (4)
  - Eye swelling [Unknown]
  - Foreign body sensation in eyes [Not Recovered/Not Resolved]
  - Vision blurred [Not Recovered/Not Resolved]
  - Product use in unapproved indication [Unknown]
